FAERS Safety Report 19067192 (Version 1)
Quarter: 2021Q1

REPORT INFORMATION
  Report Type: Spontaneous
  Country: US (occurrence: US)
  Receive Date: 20210329
  Receipt Date: 20210329
  Transmission Date: 20210420
  Serious: Yes (Life-Threatening, Hospitalization, Other)
  Sender: FDA-Public Use
  Company Number: US-AUROBINDO-AUR-APL-2021-011333

PATIENT
  Age: 85 Year
  Sex: Female

DRUGS (2)
  1. DEXMEDETOMIDINE. [Suspect]
     Active Substance: DEXMEDETOMIDINE
     Indication: SEDATION
     Dosage: 0.6 MICROGRAM/KILOGRAM, EVERY HOUR
     Route: 065
  2. PROPOFOL. [Suspect]
     Active Substance: PROPOFOL
     Indication: SEDATION
     Dosage: 16 MICROGRAM/KILOGRAM (1 MINUTE)
     Route: 065

REACTIONS (2)
  - Hypotension [Recovered/Resolved]
  - Atrioventricular block second degree [Recovered/Resolved]
